FAERS Safety Report 5791630-3 (Version None)
Quarter: 2008Q2

REPORT INFORMATION
  Report Type: 
  Country: None (occurrence: None)
  Receive Date: 20080626
  Receipt Date: 20080307
  Transmission Date: 20081010
  Serious: No
  Sender: FDA-Public Use
  Company Number: A0713953A

PATIENT
  Age: 45 Year
  Sex: Female

DRUGS (1)
  1. ALLI [Suspect]
     Route: 048
     Dates: start: 20080222, end: 20080306

REACTIONS (4)
  - FLUSHING [None]
  - RASH [None]
  - RASH PRURITIC [None]
  - STEATORRHOEA [None]
